FAERS Safety Report 6872444-X (Version None)
Quarter: 2010Q3

REPORT INFORMATION
  Report Type: 
  Country: None (occurrence: None)
  Receive Date: 20100723
  Receipt Date: 20081223
  Transmission Date: 20110219
  Serious: Yes (Hospitalization)
  Sender: FDA-Public Use
  Company Number: US-PFIZER INC-2008082578

PATIENT
  Age: 38 Year
  Sex: Female

DRUGS (3)
  1. CHANTIX [Suspect]
     Dates: end: 20071201
  2. XANAX [Concomitant]
     Indication: ANXIETY
  3. ANTIDEPRESSANTS [Concomitant]

REACTIONS (1)
  - VERTIGO [None]
